FAERS Safety Report 7391861-5 (Version None)
Quarter: 2011Q2

REPORT INFORMATION
  Report Type: 
  Country: None (occurrence: None)
  Receive Date: 20110404
  Receipt Date: 20110330
  Transmission Date: 20111010
  Serious: Yes (Hospitalization)
  Sender: FDA-Public Use
  Company Number: FR-ROCHE-768579

PATIENT
  Sex: Male

DRUGS (10)
  1. XATRAL [Concomitant]
     Dosage: LONG TERM
     Route: 048
  2. PLAVIX [Concomitant]
     Dosage: LONG TERM
     Route: 048
  3. HAVLANE [Concomitant]
  4. ROCEPHIN [Concomitant]
  5. ROCEPHIN [Suspect]
     Indication: URINARY TRACT INFECTION
     Route: 042
     Dates: start: 20101130, end: 20101204
  6. INIPOMP [Concomitant]
     Dosage: LONG TERM
     Route: 048
  7. GLUCOVANCE [Concomitant]
     Dosage: GLUCOVANCE 500
  8. PANDEMRIX [Suspect]
     Route: 058
     Dates: start: 20101111, end: 20101111
  9. ACETAMINOPHEN [Concomitant]
     Dosage: LONG TERM
     Route: 048
  10. FORLAX [Concomitant]
     Dosage: LONG TERM
     Route: 048

REACTIONS (2)
  - DISTURBANCE IN ATTENTION [None]
  - GENERAL PHYSICAL HEALTH DETERIORATION [None]
